FAERS Safety Report 26074818 (Version 1)
Quarter: 2025Q4

REPORT INFORMATION
  Report Type: Spontaneous
  Country: CN (occurrence: CN)
  Receive Date: 20251121
  Receipt Date: 20251121
  Transmission Date: 20260117
  Serious: Yes (Hospitalization, Other)
  Sender: NATCO PHARMA
  Company Number: CN-NATCO-000043-01

PATIENT
  Age: 55 Year
  Sex: Female
  Weight: 65 kg

DRUGS (4)
  1. DOXORUBICIN [Suspect]
     Active Substance: DOXORUBICIN
     Indication: Invasive ductal breast carcinoma
     Route: 065
     Dates: start: 20240722
  2. CYCLOPHOSPHAMIDE [Suspect]
     Active Substance: CYCLOPHOSPHAMIDE
     Indication: Invasive ductal breast carcinoma
     Route: 065
     Dates: start: 20240722
  3. PIRARUBICIN [Suspect]
     Active Substance: PIRARUBICIN
     Indication: Invasive ductal breast carcinoma
     Route: 065
     Dates: start: 20240722
  4. PACLITAXEL [Suspect]
     Active Substance: PACLITAXEL
     Indication: Invasive ductal breast carcinoma
     Route: 065
     Dates: start: 20240722

REACTIONS (5)
  - Cystoid macular oedema [Not Recovered/Not Resolved]
  - Vision blurred [Not Recovered/Not Resolved]
  - Drug interaction [Unknown]
  - Myelosuppression [Unknown]
  - Eyelid oedema [Recovering/Resolving]
